FAERS Safety Report 10985897 (Version 1)
Quarter: 2015Q1

REPORT INFORMATION
  Report Type: Spontaneous
  Country: US (occurrence: None)
  Receive Date: 20150313
  Receipt Date: 20150313
  Transmission Date: 20150721
  Serious: Yes (Other)
  Sender: FDA-Public Use
  Company Number: 1366889

PATIENT
  Sex: Female

DRUGS (2)
  1. ADVAIR DISKUS (FLUTICASONE PROPIONATE, SALMETEROL XINAFOATE) [Concomitant]
  2. XOLAIR [Suspect]
     Active Substance: OMALIZUMAB
     Indication: ASTHMA
     Dosage: DATE OF MOST RECENT INJECTION: 06/MAR/2014 (150 MG , 1 IN ,1 M) , SUBCUTANEOUS
     Route: 058
     Dates: start: 20140306

REACTIONS (2)
  - Dyspnoea [None]
  - Tremor [None]
